FAERS Safety Report 4327845-0 (Version None)
Quarter: 2004Q1

REPORT INFORMATION
  Report Type: 
  Country: None (occurrence: None)
  Receive Date: 20040325
  Receipt Date: 20040315
  Transmission Date: 20041129
  Serious: Yes (Other)
  Sender: FDA-Public Use
  Company Number: US-JNJFOC-20040303414

PATIENT
  Age: 55 Year
  Sex: Female

DRUGS (10)
  1. REMICADE [Suspect]
     Indication: RHEUMATOID ARTHRITIS
     Dosage: INTRAVENOUS
     Route: 042
     Dates: start: 20010827, end: 20030101
  2. GLUCOPHAGE [Concomitant]
  3. GLUCOTROL [Concomitant]
  4. VERAPAMIL [Concomitant]
  5. MONOPRIL [Concomitant]
  6. ZANTAC [Concomitant]
  7. VICODIN [Concomitant]
  8. METHOTREXATE [Concomitant]
  9. ARTHRITIS TYLENOL (PARACETAMOL) [Concomitant]
  10. FOLIC ACID [Concomitant]

REACTIONS (4)
  - HISTOPLASMOSIS [None]
  - HOARSENESS [None]
  - PHARYNGOLARYNGEAL PAIN [None]
  - PULMONARY MASS [None]
